FAERS Safety Report 5776058-4 (Version None)
Quarter: 2008Q2

REPORT INFORMATION
  Report Type: 
  Country: None (occurrence: None)
  Receive Date: 20080613
  Receipt Date: 20080602
  Transmission Date: 20081010
  Serious: Yes (Hospitalization)
  Sender: FDA-Public Use
  Company Number: 2008BI014231

PATIENT
  Age: 41 Year
  Sex: Male

DRUGS (6)
  1. AVONEX [Suspect]
     Indication: MULTIPLE SCLEROSIS
     Dosage: 30 UG;QW;IM
     Route: 030
     Dates: start: 20080114, end: 20080317
  2. ADDERALL 10 [Concomitant]
  3. PROZAC [Concomitant]
  4. LISINOPRIL [Concomitant]
  5. ANTACID TAB [Concomitant]
  6. SLEEPING MEDICATION [Concomitant]

REACTIONS (4)
  - CONFUSIONAL STATE [None]
  - HALLUCINATION [None]
  - MULTIPLE DRUG OVERDOSE [None]
  - PARANOIA [None]
